FAERS Safety Report 5039509-9 (Version None)
Quarter: 2006Q2

REPORT INFORMATION
  Report Type: 
  Country: None (occurrence: None)
  Receive Date: 20060629
  Receipt Date: 20060620
  Transmission Date: 20061013
  Serious: Yes (Other)
  Sender: FDA-Public Use
  Company Number: FR-AMGEN-UK183708

PATIENT
  Age: 73 Year
  Sex: Female

DRUGS (4)
  1. MIMPARA [Suspect]
     Indication: DRUG USE FOR UNKNOWN INDICATION
     Route: 065
     Dates: start: 20060413, end: 20060606
  2. KAYEXALATE [Concomitant]
     Route: 065
  3. TAHOR [Concomitant]
     Route: 065
     Dates: end: 20060607
  4. IMOVANE [Concomitant]
     Route: 065

REACTIONS (9)
  - ABDOMINAL PAIN [None]
  - ALANINE AMINOTRANSFERASE ABNORMAL [None]
  - ASPARTATE AMINOTRANSFERASE ABNORMAL [None]
  - DRUG ADMINISTRATION ERROR [None]
  - DRUG INTERACTION [None]
  - GAMMA-GLUTAMYLTRANSFERASE ABNORMAL [None]
  - HEPATITIS TOXIC [None]
  - LIPASE ABNORMAL [None]
  - TREATMENT NONCOMPLIANCE [None]
